FAERS Safety Report 5843946-X (Version None)
Quarter: 2008Q3

REPORT INFORMATION
  Report Type: 
  Country: None (occurrence: None)
  Receive Date: 20080813
  Receipt Date: 20080808
  Transmission Date: 20090109
  Serious: Yes (Hospitalization)
  Sender: FDA-Public Use
  Company Number: US-ASTRAZENECA-2008UW15657

PATIENT
  Age: 66 Year
  Sex: Male

DRUGS (9)
  1. LISINOPRIL [Suspect]
     Route: 048
  2. TOPROL-XL [Suspect]
     Route: 048
  3. TEMOZOLOMIDE [Suspect]
     Indication: GLIOBLASTOMA MULTIFORME
     Dosage: TOTAL DOSE TO DATE 19,425 MG
     Route: 048
     Dates: start: 20071113
  4. BEVACIZUMAB [Suspect]
     Indication: GLIOBLASTOMA MULTIFORME
     Dosage: 10 MG/KG IV 90-30 MIN DAYS 1 AND 15 (TOTAL DOSE TO DATE 11,780 MG)
     Route: 042
     Dates: start: 20071113
  5. ASPIRIN [Suspect]
  6. KEPPRA [Suspect]
  7. DECADRON SRC [Concomitant]
  8. PROTONIX [Concomitant]
  9. SENNA [Concomitant]

REACTIONS (7)
  - ACUTE MYOCARDIAL INFARCTION [None]
  - ASTHENIA [None]
  - BRADYCARDIA [None]
  - CONTUSION [None]
  - FATIGUE [None]
  - SPEECH DISORDER [None]
  - VISION BLURRED [None]
